FAERS Safety Report 5273163-6 (Version None)
Quarter: 2007Q1

REPORT INFORMATION
  Report Type: 
  Country: None (occurrence: None)
  Receive Date: 20070322
  Receipt Date: 20070313
  Transmission Date: 20070707
  Serious: Yes (Other)
  Sender: FDA-Public Use
  Company Number: JP-BOEHRINGER INGELHEIM GMBH, GERMANY-2007-DE-01507GD

PATIENT
  Age: 65 Year
  Sex: Female

DRUGS (3)
  1. SCOPOLAMINE-BUTYLBROMIDE [Suspect]
     Indication: PREMEDICATION
     Route: 030
  2. SCOPOLAMINE-BUTYLBROMIDE [Suspect]
     Indication: ENDOSCOPY UPPER GASTROINTESTINAL TRACT
  3. LIDOCAINE [Suspect]
     Dosage: 8% TOPICAL PHARYNGEAL LIDOCAINE SPRAY

REACTIONS (1)
  - GLOBAL AMNESIA [None]
